FAERS Safety Report 9346972 (Version 2)
Quarter: 2013Q3

REPORT INFORMATION
  Report Type: Spontaneous
  Country: US (occurrence: US)
  Receive Date: 20130613
  Receipt Date: 20130705
  Transmission Date: 20140515
  Serious: Yes (Hospitalization, Other)
  Sender: FDA-Public Use
  Company Number: US-INCYTE CORPORATION-2013IN001182

PATIENT
  Sex: Male
  Weight: 84.35 kg

DRUGS (5)
  1. JAKAFI [Suspect]
     Indication: MYELOFIBROSIS
     Dosage: 20 MG, BID
     Route: 048
     Dates: start: 2012, end: 2013
  2. JAKAFI [Suspect]
     Indication: MYELOPROLIFERATIVE DISORDER
     Dosage: 20 MG, BID
     Route: 048
     Dates: start: 201304
  3. LISINOPRIL [Concomitant]
  4. PERCOCET [Concomitant]
     Indication: PAIN
     Dosage: 10-325 MG, Q8H PRN
  5. XANAX [Concomitant]

REACTIONS (3)
  - Deep vein thrombosis [Recovering/Resolving]
  - Pneumonia [Recovering/Resolving]
  - Cellulitis [Recovering/Resolving]
